FAERS Safety Report 9363344 (Version 1)
Quarter: 2013Q2

REPORT INFORMATION
  Report Type: Spontaneous
  Country: US (occurrence: None)
  Receive Date: 20130621
  Receipt Date: 20130621
  Transmission Date: 20140414
  Serious: Yes (Disabling)
  Sender: FDA-Public Use
  Company Number: None

PATIENT
  Age: 30 Year
  Sex: Male
  Weight: 69.4 kg

DRUGS (1)
  1. PROPECIA [Suspect]
     Indication: ANDROGENETIC ALOPECIA
     Route: 048
     Dates: start: 20120301, end: 20120321

REACTIONS (5)
  - Erectile dysfunction [None]
  - Erectile dysfunction [None]
  - Loss of libido [None]
  - Genital hypoaesthesia [None]
  - Testicular pain [None]
